FAERS Safety Report 13930768 (Version 1)
Quarter: 2017Q3

REPORT INFORMATION
  Report Type: Spontaneous
  Country: FR (occurrence: FR)
  Receive Date: 20170901
  Receipt Date: 20170901
  Transmission Date: 20171127
  Serious: Yes (Other)
  Sender: FDA-Public Use
  Company Number: FR-MERCK KGAA-2025481

PATIENT
  Age: 47 Year
  Sex: Female

DRUGS (1)
  1. NOVOTHYROX [Suspect]
     Active Substance: LEVOTHYROXINE SODIUM
     Indication: THYROID MASS
     Dates: start: 201706

REACTIONS (8)
  - Pituitary tumour benign [Unknown]
  - Fatigue [Unknown]
  - Depressed mood [Unknown]
  - Headache [Unknown]
  - Middle insomnia [Unknown]
  - Insomnia [Unknown]
  - Major depression [Unknown]
  - Discomfort [Unknown]
